FAERS Safety Report 17016118 (Version 1)
Quarter: 2019Q4

REPORT INFORMATION
  Report Type: Spontaneous
  Country: US (occurrence: US)
  Receive Date: 20191109
  Receipt Date: 20191109
  Transmission Date: 20200122
  Serious: Yes (Other)
  Sender: FDA-Public Use
  Company Number: None

PATIENT
  Age: 49 Year
  Sex: Female
  Weight: 58.5 kg

DRUGS (5)
  1. DR. MERCOLA VITAMIN C [Concomitant]
  2. VICKS SINEX 12 HOUR DECONGESTANT ULTRA FINE MIST MOISTURIZING [Suspect]
     Active Substance: OXYMETAZOLINE HYDROCHLORIDE
     Indication: SINUS DISORDER
     Dosage: ?          QUANTITY:2 SPRAY(S);?
     Route: 055
  3. VICKS SINEX 12 HOUR DECONGESTANT ULTRA FINE MIST MOISTURIZING [Suspect]
     Active Substance: OXYMETAZOLINE HYDROCHLORIDE
     Indication: NASOPHARYNGITIS
     Dosage: ?          QUANTITY:2 SPRAY(S);?
     Route: 055
  4. VYVANSE [Concomitant]
     Active Substance: LISDEXAMFETAMINE DIMESYLATE
  5. DR. MERCOLA PROBIOTIC [Concomitant]

REACTIONS (7)
  - Pneumonia [None]
  - Skin lesion [None]
  - Dyspnoea [None]
  - Skin odour abnormal [None]
  - Blister [None]
  - Application site burn [None]
  - Madarosis [None]

NARRATIVE: CASE EVENT DATE: 20191102
